FAERS Safety Report 23026150 (Version 1)
Quarter: 2023Q4

REPORT INFORMATION
  Report Type: Spontaneous
  Country: US (occurrence: US)
  Receive Date: 20231004
  Receipt Date: 20231004
  Transmission Date: 20240110
  Serious: Yes (Other)
  Sender: FDA-Public Use
  Company Number: US-BEIGENE-BGN-2023-010693

PATIENT

DRUGS (1)
  1. BRUKINSA [Suspect]
     Active Substance: ZANUBRUTINIB
     Indication: Chronic lymphocytic leukaemia
     Dosage: 80 MILLIGRAM
     Dates: start: 20230827, end: 20230829

REACTIONS (11)
  - Intracranial pressure increased [Recovering/Resolving]
  - Fatigue [Recovering/Resolving]
  - Abnormal faeces [Recovering/Resolving]
  - Rash [Recovering/Resolving]
  - Headache [Recovering/Resolving]
  - Walking aid user [Recovering/Resolving]
  - Balance disorder [Unknown]
  - Sleep disorder [Recovering/Resolving]
  - Malaise [Recovering/Resolving]
  - Dizziness [Recovering/Resolving]
  - Diarrhoea [Recovering/Resolving]

NARRATIVE: CASE EVENT DATE: 20230827
